FAERS Safety Report 14946918 (Version 2)
Quarter: 2018Q2

REPORT INFORMATION
  Report Type: Report from Study
  Country: CN (occurrence: CN)
  Receive Date: 20180529
  Receipt Date: 20180604
  Transmission Date: 20180711
  Serious: Yes (Life-Threatening)
  Sender: FDA-Public Use
  Company Number: CN-JNJFOC-20180532170

PATIENT
  Age: 62 Year
  Sex: Male
  Weight: 78 kg

DRUGS (3)
  1. REMICADE [Suspect]
     Active Substance: INFLIXIMAB
     Indication: PSORIASIS
     Dosage: AT 0, 2 AND 6 WEEKS AND THEN EVERY 8 WEEKS
     Route: 042
     Dates: start: 20161214
  2. REMICADE [Suspect]
     Active Substance: INFLIXIMAB
     Indication: PSORIASIS
     Dosage: THREE VIALS; 12TH TIME
     Route: 042
     Dates: start: 20180523
  3. REMICADE [Suspect]
     Active Substance: INFLIXIMAB
     Indication: PSORIASIS
     Dosage: 11TH TIME
     Route: 042
     Dates: start: 201804

REACTIONS (4)
  - Infusion related reaction [Recovering/Resolving]
  - Off label use [Unknown]
  - Product use issue [Unknown]
  - Anaphylactic shock [Recovering/Resolving]

NARRATIVE: CASE EVENT DATE: 20180523
